FAERS Safety Report 7888202 (Version 2)
Quarter: 2015Q1

REPORT INFORMATION
  Report Type: Spontaneous
  Country: DE (occurrence: DE)
  Receive Date: 20110406
  Receipt Date: 20150121
  Transmission Date: 20150721
  Serious: Yes (Other)
  Sender: FDA-Public Use
  Company Number: DE-WATSON-2011-04739

PATIENT
  Age: 0 Day
  Sex: Female
  Weight: 2.97 kg

DRUGS (3)
  1. CITALOPRAM [Suspect]
     Active Substance: CITALOPRAM HYDROBROMIDE
     Indication: ANXIETY DISORDER
     Dosage: 20 MG, DAILY
     Route: 064
     Dates: start: 20100119, end: 20101107
  2. FOLIO FORTE [Concomitant]
     Active Substance: FOLIC ACID\VITAMINS
     Indication: AUTOIMMUNE THYROIDITIS
     Dosage: 0.8 MG, DAILY
     Route: 064
     Dates: end: 20100712
  3. L-THYROXIN [Concomitant]
     Active Substance: LEVOTHYROXINE SODIUM
     Indication: AUTOIMMUNE THYROIDITIS
     Dosage: 50 UG, DAILY
     Route: 064
     Dates: end: 20101107

REACTIONS (2)
  - Small for dates baby [Recovered/Resolved]
  - Exposure during pregnancy [Unknown]

NARRATIVE: CASE EVENT DATE: 20101107
